FAERS Safety Report 11300651 (Version 1)
Quarter: 2015Q3

REPORT INFORMATION
  Report Type: Spontaneous
  Country: US (occurrence: US)
  Receive Date: 20150722
  Receipt Date: 20150722
  Transmission Date: 20151125
  Serious: No
  Sender: FDA-Public Use
  Company Number: US-ELI_LILLY_AND_COMPANY-US201311000244

PATIENT
  Age: 71 Year
  Weight: 58.5 kg

DRUGS (12)
  1. DOXYCYCLINE HYCLATE. [Concomitant]
     Active Substance: DOXYCYCLINE HYCLATE
  2. FLAGYL [Concomitant]
     Active Substance: METRONIDAZOLE\METRONIDAZOLE HYDROCHLORIDE
  3. EVISTA [Suspect]
     Active Substance: RALOXIFENE HYDROCHLORIDE
     Dosage: 60MG, DAILY
     Dates: end: 20130916
  4. AXID AR [Concomitant]
     Active Substance: NIZATIDINE
  5. PREDNISONE. [Concomitant]
     Active Substance: PREDNISONE
  6. ARIMIDEX [Concomitant]
     Active Substance: ANASTROZOLE
  7. SEPTRA [Concomitant]
     Active Substance: SULFAMETHOXAZOLE\TRIMETHOPRIM
  8. DESONIDE. [Concomitant]
     Active Substance: DESONIDE
     Route: 061
  9. EVISTA [Suspect]
     Active Substance: RALOXIFENE HYDROCHLORIDE
     Indication: BONE DISORDER
     Dosage: 60MG, DAILY
     Route: 048
     Dates: start: 2008, end: 2009
  10. FLOXIN [Concomitant]
     Active Substance: OFLOXACIN
  11. CALCIUM [Concomitant]
     Active Substance: CALCIUM
  12. NORTRIPTYLINE HYDROCHLORIDE. [Concomitant]
     Active Substance: NORTRIPTYLINE HYDROCHLORIDE

REACTIONS (2)
  - Bone density decreased [Unknown]
  - Dermatitis contact [Recovered/Resolved]

NARRATIVE: CASE EVENT DATE: 200805
